FAERS Safety Report 4478356-3 (Version None)
Quarter: 2004Q4

REPORT INFORMATION
  Report Type: 
  Country: None (occurrence: None)
  Receive Date: 20041013
  Receipt Date: 20040927
  Transmission Date: 20050328
  Serious: Yes (Other)
  Sender: FDA-Public Use
  Company Number: JP_040904629

PATIENT
  Age: 17 Year
  Sex: Female

DRUGS (7)
  1. VANCOMYCIN [Suspect]
     Indication: CLOSTRIDIUM COLITIS
     Dosage: 500 MG DAY
     Dates: start: 20040809, end: 20040812
  2. TIENAM [Concomitant]
  3. AMINOFLUID [Concomitant]
  4. METOCLOPRAMIDE [Concomitant]
  5. PANTOL (DEXPANTHENOL) [Concomitant]
  6. FOY (GABEXATE MESILATE) [Concomitant]
  7. ANTITHROMBIN III [Concomitant]

REACTIONS (3)
  - ALANINE AMINOTRANSFERASE INCREASED [None]
  - ASPARTATE AMINOTRANSFERASE INCREASED [None]
  - DISSEMINATED INTRAVASCULAR COAGULATION [None]
